FAERS Safety Report 18379797 (Version 3)
Quarter: 2020Q4

REPORT INFORMATION
  Report Type: Spontaneous
  Country: JP (occurrence: JP)
  Receive Date: 20201014
  Receipt Date: 20201113
  Transmission Date: 20210114
  Serious: Yes (Other)
  Sender: FDA-Public Use
  Company Number: JP-UCBSA-2019052387

PATIENT
  Age: 30 Year
  Sex: Female
  Weight: 45 kg

DRUGS (6)
  1. ISODINE [Concomitant]
     Active Substance: POVIDONE-IODINE
     Indication: NASOPHARYNGITIS
     Dosage: UNK
     Route: 048
     Dates: start: 20180907, end: 20180914
  2. MONTELUKAST OD [Concomitant]
     Indication: NASOPHARYNGITIS
     Dosage: 10 MILLIGRAM
     Route: 048
     Dates: start: 20180907, end: 20180914
  3. CIMZIA [Suspect]
     Active Substance: CERTOLIZUMAB PEGOL
     Dosage: 200 MILLIGRAM, EV 2 WEEKS(QOW)
     Route: 058
     Dates: start: 20200419
  4. CIMZIA [Suspect]
     Active Substance: CERTOLIZUMAB PEGOL
     Indication: RHEUMATOID ARTHRITIS
     Dosage: 200 MILLIGRAM, EV 2 WEEKS(QOW)
     Route: 058
     Dates: start: 20180730, end: 20190731
  5. TALION [BEPOTASTINE BESILATE] [Concomitant]
     Active Substance: BEPOTASTINE BESYLATE
     Indication: NASOPHARYNGITIS
     Dosage: 10 MILLIGRAM, 2X/DAY (BID)
     Route: 048
     Dates: start: 20190202, end: 20190301
  6. TALION [BEPOTASTINE BESILATE] [Concomitant]
     Active Substance: BEPOTASTINE BESYLATE
     Indication: SEASONAL ALLERGY
     Dosage: 10 MILLIGRAM, 2X/DAY (BID)
     Route: 048
     Dates: start: 20180907, end: 20180914

REACTIONS (4)
  - Maternal exposure during breast feeding [Unknown]
  - Osteoporosis [Not Recovered/Not Resolved]
  - Face presentation [Unknown]
  - Maternal exposure before pregnancy [Unknown]

NARRATIVE: CASE EVENT DATE: 201811
